FAERS Safety Report 25727818 (Version 1)
Quarter: 2025Q3

REPORT INFORMATION
  Report Type: Spontaneous
  Country: US (occurrence: None)
  Receive Date: 20250826
  Receipt Date: 20250826
  Transmission Date: 20251020
  Serious: No
  Sender: FDA-CTU
  Company Number: None

PATIENT
  Age: 71 Year
  Sex: Female
  Weight: 110.22 kg

DRUGS (1)
  1. XOLAIR [Suspect]
     Active Substance: OMALIZUMAB
     Indication: Chronic spontaneous urticaria
     Route: 058
     Dates: start: 20250202

REACTIONS (4)
  - Burning sensation [None]
  - Pain in extremity [None]
  - Musculoskeletal stiffness [None]
  - Peripheral swelling [None]

NARRATIVE: CASE EVENT DATE: 20250807
